FAERS Safety Report 13253013 (Version 2)
Quarter: 2017Q1

REPORT INFORMATION
  Report Type: Spontaneous
  Country: US (occurrence: US)
  Receive Date: 20170220
  Receipt Date: 20170228
  Transmission Date: 20170428
  Serious: Yes (Death, Hospitalization, Other)
  Sender: FDA-Public Use
  Company Number: US-ACADIA PHARMACEUTICALS INC.-ACA-2016-001457

PATIENT
  Age: 85 Year
  Sex: Male
  Weight: 66.67 kg

DRUGS (6)
  1. NUPLAZID [Suspect]
     Active Substance: PIMAVANSERIN TARTRATE
     Indication: DELUSION
  2. SEROQUEL [Concomitant]
     Active Substance: QUETIAPINE FUMARATE
     Indication: PRODUCT USED FOR UNKNOWN INDICATION
     Dosage: 50 MG, AT BED TIME
  3. PRAVASTATIN. [Concomitant]
     Active Substance: PRAVASTATIN
     Indication: PRODUCT USED FOR UNKNOWN INDICATION
  4. VITAMIN D [Concomitant]
     Active Substance: CHOLECALCIFEROL
     Indication: PRODUCT USED FOR UNKNOWN INDICATION
  5. NUPLAZID [Suspect]
     Active Substance: PIMAVANSERIN TARTRATE
     Indication: HALLUCINATION
     Dosage: 34 MG, QD
     Route: 048
     Dates: start: 20161018, end: 201702
  6. NUPLAZID [Suspect]
     Active Substance: PIMAVANSERIN TARTRATE
     Indication: PARKINSON^S DISEASE PSYCHOSIS

REACTIONS (15)
  - Feeling abnormal [Recovering/Resolving]
  - Balance disorder [Not Recovered/Not Resolved]
  - Mobility decreased [Recovering/Resolving]
  - Dyspnoea [Not Recovered/Not Resolved]
  - Urinary tract infection [Recovering/Resolving]
  - Drug ineffective [Unknown]
  - Aspiration [Not Recovered/Not Resolved]
  - Fatigue [Not Recovered/Not Resolved]
  - Delusion [Not Recovered/Not Resolved]
  - Somnolence [Not Recovered/Not Resolved]
  - Pneumonia [Not Recovered/Not Resolved]
  - Endotracheal intubation [Not Recovered/Not Resolved]
  - Decreased appetite [Not Recovered/Not Resolved]
  - Death [Fatal]
  - Insomnia [Recovering/Resolving]

NARRATIVE: CASE EVENT DATE: 2016
